FAERS Safety Report 23219620 (Version 1)
Quarter: 2023Q4

REPORT INFORMATION
  Report Type: Report from Study
  Country: CN (occurrence: CN)
  Receive Date: 20231122
  Receipt Date: 20231122
  Transmission Date: 20240109
  Serious: Yes (Hospitalization)
  Sender: FDA-Public Use
  Company Number: CN-Eisai-EC-2023-153198

PATIENT
  Age: 57 Year
  Sex: Female
  Weight: 42 kg

DRUGS (3)
  1. LENVATINIB [Suspect]
     Active Substance: LENVATINIB
     Indication: Hepatic cancer
     Route: 048
     Dates: start: 20210518, end: 20210715
  2. TORIPALIMAB [Suspect]
     Active Substance: TORIPALIMAB
     Indication: Hepatic cancer
     Dosage: JS001/PLACEBO
     Route: 041
     Dates: start: 20210518, end: 20210628
  3. ENTECAVIR [Concomitant]
     Active Substance: ENTECAVIR
     Indication: Hepatitis viral
     Route: 048
     Dates: start: 20210514

REACTIONS (1)
  - Postoperative wound infection [Recovered/Resolved]

NARRATIVE: CASE EVENT DATE: 20210615
